FAERS Safety Report 9468313 (Version 4)
Quarter: 2013Q4

REPORT INFORMATION
  Report Type: Report from Study
  Country: CA (occurrence: CA)
  Receive Date: 20130821
  Receipt Date: 20131220
  Transmission Date: 20140711
  Serious: Yes (Other)
  Sender: FDA-Public Use
  Company Number: CA-JNJFOC-20130808730

PATIENT
  Age: 34 Year
  Sex: Male
  Weight: 81.65 kg

DRUGS (8)
  1. STELARA [Suspect]
     Indication: CROHN^S DISEASE
     Route: 058
     Dates: start: 20131009
  2. STELARA [Suspect]
     Indication: CROHN^S DISEASE
     Route: 058
     Dates: start: 20130807
  3. STELARA [Suspect]
     Indication: CROHN^S DISEASE
     Route: 058
     Dates: start: 20130729
  4. PREDNISONE [Concomitant]
     Route: 048
  5. BENADRYL [Concomitant]
     Route: 048
  6. TYLENOL [Concomitant]
     Route: 048
  7. DILAUDID [Concomitant]
     Dosage: EVERY 4-6 H; 1-2 TABLETS
     Route: 065
  8. GRAVOL [Concomitant]
     Route: 065

REACTIONS (10)
  - Dehydration [Recovered/Resolved]
  - Vomiting [Recovered/Resolved]
  - Diarrhoea [Recovered/Resolved]
  - Local swelling [Recovered/Resolved]
  - Pruritus [Recovered/Resolved]
  - Headache [Recovered/Resolved]
  - Swelling face [Recovered/Resolved]
  - Off label use [Unknown]
  - Paraesthesia [Recovered/Resolved]
  - Local swelling [Recovered/Resolved]
